FAERS Safety Report 5218784-1 (Version None)
Quarter: 2007Q1

REPORT INFORMATION
  Report Type: 
  Country: None (occurrence: None)
  Receive Date: 20070123
  Receipt Date: 20070109
  Transmission Date: 20070707
  Serious: Yes (Hospitalization)
  Sender: FDA-Public Use
  Company Number: POMP-10918

PATIENT
  Age: 2 Month
  Sex: Male
  Weight: 5.5 kg

DRUGS (8)
  1. MYOZYME [Suspect]
     Indication: GLYCOGEN STORAGE DISEASE TYPE II
     Dosage: 20 MG/KG Q2WKS IV
     Route: 042
     Dates: start: 20060911
  2. BUDESONIDE [Concomitant]
  3. XOPENEX [Concomitant]
  4. LANSOPRAZOLE [Concomitant]
  5. DIGOXIN [Concomitant]
  6. PROPRANOLOL [Concomitant]
  7. AMIODARONE HCL [Concomitant]
  8. MYOZYME [Suspect]

REACTIONS (23)
  - ASTHENIA [None]
  - BLEPHAROSPASM [None]
  - BLOOD CREATINE PHOSPHOKINASE INCREASED [None]
  - BLOOD CULTURE POSITIVE [None]
  - CANDIDIASIS [None]
  - CARDIAC DISORDER [None]
  - CENTRAL LINE INFECTION [None]
  - ENDOTRACHEAL INTUBATION COMPLICATION [None]
  - ENTEROCOCCAL INFECTION [None]
  - FEEDING DISORDER [None]
  - HYPOREFLEXIA [None]
  - MASS [None]
  - MUSCULAR WEAKNESS [None]
  - NERVOUS SYSTEM DISORDER [None]
  - NYSTAGMUS [None]
  - PARAINFLUENZAE VIRUS INFECTION [None]
  - PNEUMONIA [None]
  - PSEUDOMONAS INFECTION [None]
  - RESPIRATORY FAILURE [None]
  - RESPIRATORY TRACT INFECTION [None]
  - STAPHYLOCOCCAL INFECTION [None]
  - SUPRAVENTRICULAR TACHYCARDIA [None]
  - WHEEZING [None]
